FAERS Safety Report 20723818 (Version 6)
Quarter: 2022Q3

REPORT INFORMATION
  Report Type: Spontaneous
  Country: JP (occurrence: JP)
  Receive Date: 20220419
  Receipt Date: 20220816
  Transmission Date: 20221027
  Serious: Yes (Death, Other)
  Sender: FDA-Public Use
  Company Number: JP-ASTELLAS-2022JP005652

PATIENT
  Age: 77 Year
  Sex: Male
  Weight: 49 kg

DRUGS (10)
  1. XOSPATA [Suspect]
     Active Substance: GILTERITINIB
     Indication: Acute myeloid leukaemia refractory
     Route: 048
     Dates: start: 20220315, end: 20220324
  2. MAGNESIUM OXIDE [Concomitant]
     Active Substance: MAGNESIUM OXIDE
     Indication: Product used for unknown indication
     Dosage: UNK UNK, UNKNOWN FREQ.
     Route: 065
     Dates: end: 20220403
  3. IDAMYCIN [Concomitant]
     Active Substance: IDARUBICIN HYDROCHLORIDE
     Indication: Acute myeloid leukaemia
     Dosage: UNK UNK, UNKNOWN FREQ.
     Route: 065
  4. CYTARABINE [Concomitant]
     Active Substance: CYTARABINE
     Indication: Acute myeloid leukaemia
     Dosage: UNK UNK, UNKNOWN FREQ.
     Route: 065
  5. LANSOPRAZOLE [Concomitant]
     Active Substance: LANSOPRAZOLE
     Indication: Prophylaxis against gastrointestinal ulcer
     Route: 048
     Dates: start: 20220209, end: 20220326
  6. FEBUXOSTAT [Concomitant]
     Active Substance: FEBUXOSTAT
     Indication: Hyperuricaemia
     Route: 048
     Dates: start: 20220209, end: 20220312
  7. CEFEPIME [Concomitant]
     Active Substance: CEFEPIME HYDROCHLORIDE
     Indication: Pneumonia
     Route: 042
     Dates: start: 20220216, end: 20220403
  8. VIDAZA [Concomitant]
     Active Substance: AZACITIDINE
     Indication: Acute myeloid leukaemia refractory
     Route: 042
     Dates: start: 20220301, end: 20220309
  9. VENCLEXTA [Concomitant]
     Active Substance: VENETOCLAX
     Indication: Acute myeloid leukaemia refractory
     Route: 048
     Dates: start: 20220301
  10. VENCLEXTA [Concomitant]
     Active Substance: VENETOCLAX
     Route: 048
     Dates: end: 20220314

REACTIONS (3)
  - Acute myeloid leukaemia [Fatal]
  - Pneumonia [Fatal]
  - Therapeutic response decreased [Unknown]

NARRATIVE: CASE EVENT DATE: 20220403
